FAERS Safety Report 9528354 (Version 1)
Quarter: 2013Q1

REPORT INFORMATION
  Report Type: Spontaneous
  Country: US (occurrence: None)
  Receive Date: 20130314
  Receipt Date: 20130314
  Transmission Date: 20140127
  Serious: Yes (Other)
  Sender: FDA-Public Use
  Company Number: 1301USA010803

PATIENT
  Age: 36 Year
  Sex: Female

DRUGS (4)
  1. VICTRELIS [Suspect]
     Indication: CHRONIC HEPATITIS C
     Route: 048
     Dates: start: 201203
  2. RIBAVIRIN [Suspect]
     Route: 048
     Dates: start: 201203
  3. PEGINTRON (PEGINTERFERON ALFA-2B) POWDER FOR INJECTION [Suspect]
     Route: 058
     Dates: start: 201203
  4. NEUPOGEN (FILGRASTIM) [Concomitant]

REACTIONS (4)
  - Blister [None]
  - Acne [None]
  - Rash [None]
  - Scratch [None]
